FAERS Safety Report 9682430 (Version 3)
Quarter: 2014Q1

REPORT INFORMATION
  Report Type: Other
  Country: US (occurrence: US)
  Receive Date: 20131112
  Receipt Date: 20140221
  Transmission Date: 20141002
  Serious: Yes (Other)
  Sender: FDA-Public Use
  Company Number: US-RANBAXY-2013US-75087

PATIENT
  Sex: Female

DRUGS (1)
  1. ABSORICA [Suspect]
     Indication: PRODUCT USED FOR UNKNOWN INDICATION
     Dosage: 20 MG, QD
     Route: 065
     Dates: start: 201307, end: 20131029

REACTIONS (4)
  - Exposure during pregnancy [Unknown]
  - Lip dry [Recovered/Resolved]
  - Dry mouth [Recovered/Resolved]
  - Self-medication [Unknown]
